FAERS Safety Report 18136439 (Version 1)
Quarter: 2020Q3

REPORT INFORMATION
  Report Type: Spontaneous
  Country: GB (occurrence: GB)
  Receive Date: 20200811
  Receipt Date: 20200811
  Transmission Date: 20201103
  Serious: Yes (Death, Hospitalization, Other)
  Sender: FDA-Public Use
  Company Number: GB-INSUD PHARMA-2007GB00182

PATIENT

DRUGS (5)
  1. LANSOPRAZOLE. [Concomitant]
     Active Substance: LANSOPRAZOLE
     Indication: PRODUCT USED FOR UNKNOWN INDICATION
  2. TESTOSTERONE. [Suspect]
     Active Substance: TESTOSTERONE
     Indication: PRODUCT USED FOR UNKNOWN INDICATION
     Dosage: 350 MG/DAY, 6?WEEKS ON/4?WEEKS OFF
     Route: 065
  3. ANABOLIC STEROIDS [Suspect]
     Active Substance: UNSPECIFIED INGREDIENT
     Indication: PRODUCT USED FOR UNKNOWN INDICATION
     Dosage: UNK
     Route: 065
  4. HUMAN GROWTH HORMONE, RECOMBINANT [Suspect]
     Active Substance: SOMATROPIN
     Indication: PRODUCT USED FOR UNKNOWN INDICATION
     Dosage: 2 IU/DAY, 6?WEEKS ON/4?WEEKS OFF
     Route: 065
  5. TAMSULOSIN [Concomitant]
     Active Substance: TAMSULOSIN
     Indication: BENIGN PROSTATIC HYPERPLASIA

REACTIONS (21)
  - Focal segmental glomerulosclerosis [Unknown]
  - Acute kidney injury [Unknown]
  - Hyperparathyroidism primary [Unknown]
  - Left ventricular failure [Unknown]
  - Myocardial infarction [Fatal]
  - Hypercalcaemia [Not Recovered/Not Resolved]
  - Calcification of muscle [Unknown]
  - Chronic kidney disease [Unknown]
  - Myositis [Unknown]
  - Muscle oedema [Unknown]
  - Left ventricular hypertrophy [Unknown]
  - Aortic stenosis [Unknown]
  - Ventricular dysfunction [Unknown]
  - Coronary artery disease [Unknown]
  - Renal impairment [Unknown]
  - Hypervitaminosis A [Unknown]
  - Rhabdomyolysis [Unknown]
  - Constipation [Unknown]
  - Oedema peripheral [Unknown]
  - Axillary mass [Unknown]
  - Proteinuria [Unknown]
